FAERS Safety Report 7803334-3 (Version None)
Quarter: 2011Q4

REPORT INFORMATION
  Report Type: 
  Country: None (occurrence: None)
  Receive Date: 20111007
  Receipt Date: 20110926
  Transmission Date: 20120403
  Serious: Yes (Life-Threatening, Hospitalization, Disabling, Other)
  Sender: FDA-Public Use
  Company Number: US-BAYER-2011-054793

PATIENT
  Age: 78 Year
  Sex: Male
  Weight: 102.2 kg

DRUGS (30)
  1. UROXATRAL [Concomitant]
  2. ALFUZOSIN HCL [Concomitant]
  3. PROCET [HYDROCODONE,PARACETAMOL] [Concomitant]
  4. NITROGLYCERIN [Concomitant]
  5. SIMVASTATIN [Concomitant]
  6. ZOFRAN [Concomitant]
  7. FLUTICASONE PROPIONATE [Concomitant]
  8. CLOPIDOGREL [Interacting]
     Indication: ACUTE CORONARY SYNDROME
  9. LISINOPRIL [Concomitant]
  10. ACETYLCYSTEINE [Concomitant]
  11. ENOXAPARIN [Concomitant]
  12. PROVENTIL [Concomitant]
  13. NITROGLYCERIN [Concomitant]
  14. RIVAROXABAN [Interacting]
     Indication: ACUTE CORONARY SYNDROME
     Dosage: 5 MG, BID
     Route: 048
     Dates: start: 20090901, end: 20110503
  15. DIPHENHYDRAMINE HCL [Concomitant]
  16. KLOR-CON [Concomitant]
  17. OLOPATADINE [Concomitant]
  18. CRESTOR [Concomitant]
  19. NEBIVOLOL HCL [Concomitant]
  20. MORPHINE [Concomitant]
  21. ACETYLSALICYLIC ACID SRT [Suspect]
     Indication: ACUTE CORONARY SYNDROME
  22. ALLEGRA [Concomitant]
  23. INSULIN ASPART [Concomitant]
  24. INTEGRILIN [Concomitant]
  25. GLIPIZIDE [Concomitant]
  26. LASIX [Concomitant]
  27. PROVENTIL [Concomitant]
  28. NASONEX [Concomitant]
  29. METOPROLOL TARTRATE [Concomitant]
  30. GARLIC [Concomitant]

REACTIONS (1)
  - HAEMORRHAGE INTRACRANIAL [None]
